FAERS Safety Report 7507067-2 (Version None)
Quarter: 2011Q2

REPORT INFORMATION
  Report Type: 
  Country: None (occurrence: None)
  Receive Date: 20110526
  Receipt Date: 20110520
  Transmission Date: 20111010
  Serious: Yes (Life-Threatening, Hospitalization, Disabling)
  Sender: FDA-Public Use
  Company Number: US-JNJFOC-20110505438

PATIENT
  Sex: Male
  Weight: 76.9 kg

DRUGS (2)
  1. PLACEBO [Suspect]
     Indication: SARCOIDOSIS
     Route: 058
     Dates: start: 20110418
  2. PLACEBO [Suspect]
     Route: 058
     Dates: start: 20101028

REACTIONS (1)
  - CEREBRAL SARCOIDOSIS [None]
